APPROVED DRUG PRODUCT: CARBIDOPA
Active Ingredient: CARBIDOPA
Strength: 25MG
Dosage Form/Route: TABLET;ORAL
Application: A211055 | Product #001 | TE Code: AB
Applicant: AUROBINDO PHARMA LTD
Approved: Oct 21, 2019 | RLD: No | RS: No | Type: RX